FAERS Safety Report 20035907 (Version 2)
Quarter: 2021Q4

REPORT INFORMATION
  Report Type: Spontaneous
  Country: DE (occurrence: DE)
  Receive Date: 20211105
  Receipt Date: 20211118
  Transmission Date: 20220304
  Serious: Yes (Other)
  Sender: FDA-Public Use
  Company Number: DE-ENDO PHARMACEUTICALS INC-2021-012573

PATIENT
  Age: 31 Year
  Sex: Male

DRUGS (2)
  1. AVEED [Suspect]
     Active Substance: TESTOSTERONE UNDECANOATE
     Indication: Hypogonadism
     Dosage: 1 DF, UNKNOWN
     Route: 065
     Dates: start: 2020
  2. AVEED [Suspect]
     Active Substance: TESTOSTERONE UNDECANOATE
     Dosage: 1 DF, SINGLE (DURATION OF INJECTION: 20 SECONDS)
     Route: 065
     Dates: start: 202109, end: 202109

REACTIONS (11)
  - Uveitis [Unknown]
  - Vitreous detachment [Unknown]
  - Hemianaesthesia [Recovering/Resolving]
  - Visual impairment [Recovering/Resolving]
  - Photopsia [Recovering/Resolving]
  - Visual evoked potentials abnormal [Unknown]
  - Gliosis [Unknown]
  - Disturbance in attention [Recovered/Resolved]
  - Aphasia [Recovered/Resolved]
  - Wrong technique in product usage process [Unknown]
  - Incorrect route of product administration [Unknown]

NARRATIVE: CASE EVENT DATE: 20210901
